FAERS Safety Report 20228073 (Version 2)
Quarter: 2022Q1

REPORT INFORMATION
  Report Type: Spontaneous
  Country: HR (occurrence: None)
  Receive Date: 20211224
  Receipt Date: 20220110
  Transmission Date: 20220424
  Serious: Yes (Hospitalization)
  Sender: FDA-Public Use
  Company Number: 2021A895950

PATIENT
  Age: 44 Year
  Sex: Female
  Weight: 85 kg

DRUGS (2)
  1. XIGDUO XR [Suspect]
     Active Substance: DAPAGLIFLOZIN PROPANEDIOL\METFORMIN HYDROCHLORIDE
     Indication: Type 2 diabetes mellitus
     Dosage: 5/1000 MG 2*1TBL
     Route: 048
     Dates: start: 2016, end: 2020
  2. LEVOTHYROXINE [Concomitant]
     Active Substance: LEVOTHYROXINE
     Indication: Hypothyroidism

REACTIONS (2)
  - Acidosis [Recovered/Resolved]
  - Coronavirus infection [Unknown]

NARRATIVE: CASE EVENT DATE: 20200929
